FAERS Safety Report 18247909 (Version 1)
Quarter: 2020Q3

REPORT INFORMATION
  Report Type: Other
  Country: MY (occurrence: MY)
  Receive Date: 20200909
  Receipt Date: 20200909
  Transmission Date: 20201103
  Serious: Yes (Other)
  Sender: FDA-Public Use
  Company Number: MY-DEXPHARM-20200800

PATIENT
  Sex: Female

DRUGS (1)
  1. CHLORHEXIDINE 0.5% IN 70% ALCOHOL [Suspect]
     Active Substance: ALCOHOL\CHLORHEXIDINE GLUCONATE
     Route: 061

REACTIONS (1)
  - Chemical burn [Recovered/Resolved with Sequelae]
